FAERS Safety Report 23484125 (Version 3)
Quarter: 2024Q2

REPORT INFORMATION
  Report Type: Spontaneous
  Country: CA (occurrence: CA)
  Receive Date: 20240206
  Receipt Date: 20240517
  Transmission Date: 20240716
  Serious: Yes (Life-Threatening, Hospitalization)
  Sender: FDA-Public Use
  Company Number: CA-JNJFOC-20240180588

PATIENT
  Age: 29 Year
  Sex: Female

DRUGS (1)
  1. MOTRIN [Suspect]
     Active Substance: IBUPROFEN
     Indication: Product used for unknown indication
     Route: 065

REACTIONS (2)
  - Angioedema [Unknown]
  - Rash [Unknown]

NARRATIVE: CASE EVENT DATE: 20230901
